FAERS Safety Report 12360073 (Version 2)
Quarter: 2016Q2

REPORT INFORMATION
  Report Type: Spontaneous
  Country: NL (occurrence: NL)
  Receive Date: 20160512
  Receipt Date: 20160526
  Transmission Date: 20160815
  Serious: Yes (Hospitalization)
  Sender: FDA-Public Use
  Company Number: NL-MYLANLABS-2016M1019369

PATIENT

DRUGS (3)
  1. METOPROLOL. [Suspect]
     Active Substance: METOPROLOL
     Indication: PRODUCT USED FOR UNKNOWN INDICATION
     Route: 048
  2. AMLODIPINE [Suspect]
     Active Substance: AMLODIPINE BESYLATE
     Indication: PRODUCT USED FOR UNKNOWN INDICATION
     Route: 048
  3. VALSARTAN. [Suspect]
     Active Substance: VALSARTAN
     Indication: PRODUCT USED FOR UNKNOWN INDICATION
     Route: 048

REACTIONS (8)
  - Toxicity to various agents [Unknown]
  - Liver disorder [Unknown]
  - Renal disorder [Unknown]
  - Haemodynamic instability [Recovering/Resolving]
  - Hepatic failure [Unknown]
  - Overdose [Unknown]
  - Renal failure [Unknown]
  - Shock [Unknown]
